FAERS Safety Report 5286043-7 (Version None)
Quarter: 2007Q1

REPORT INFORMATION
  Report Type: 
  Country: None (occurrence: None)
  Receive Date: 20070329
  Receipt Date: 20070320
  Transmission Date: 20070707
  Serious: Yes (Hospitalization)
  Sender: FDA-Public Use
  Company Number: 232191K07USA

PATIENT
  Age: 34 Year
  Sex: Male
  Weight: 115.6672 kg

DRUGS (7)
  1. REBIF [Suspect]
     Indication: MULTIPLE SCLEROSIS
     Dosage: 44 MCG, 3 IN 1 WEEKS, SUBCUTANEOUS
     Route: 058
     Dates: start: 20061106
  2. PAXIL [Concomitant]
  3. CLONAPIN (CLONAZEPAM) [Concomitant]
  4. IBUPROFEN [Concomitant]
  5. VALTREX [Concomitant]
  6. GLYBURIDE [Concomitant]
  7. TYLENOL (COTYLENOL) [Concomitant]

REACTIONS (4)
  - DYSPHAGIA [None]
  - FALL [None]
  - INTERVERTEBRAL DISC PROTRUSION [None]
  - MYALGIA [None]
